FAERS Safety Report 5609844-1 (Version None)
Quarter: 2008Q1

REPORT INFORMATION
  Report Type: 
  Country: None (occurrence: None)
  Receive Date: 20080131
  Receipt Date: 20071206
  Transmission Date: 20080703
  Serious: No
  Sender: FDA-Public Use
  Company Number: US-BAYER-200714074BCC

PATIENT
  Age: 45 Year
  Sex: Male
  Weight: 81 kg

DRUGS (2)
  1. ALEVE [Suspect]
     Indication: INTERVERTEBRAL DISC PROTRUSION
     Dosage: AS USED: 880 MG  UNIT DOSE: 220 MG
     Route: 048
     Dates: start: 20071018
  2. TYLENOL [Concomitant]

REACTIONS (1)
  - BLOOD PRESSURE INCREASED [None]
